FAERS Safety Report 7888878-0 (Version None)
Quarter: 2011Q4

REPORT INFORMATION
  Report Type: 
  Country: None (occurrence: None)
  Receive Date: 20111031
  Receipt Date: 20111026
  Transmission Date: 20120403
  Serious: Yes (Life-Threatening, Hospitalization, Other)
  Sender: FDA-Public Use
  Company Number: 2011SP050722

PATIENT
  Age: 85 Year
  Sex: Female

DRUGS (8)
  1. PRAVASTATIN SODIUM [Concomitant]
  2. SENNOSIDE A+B CALCIUM [Concomitant]
  3. MAGNESIUM OXIDE [Concomitant]
  4. MIRTAZAPINE [Suspect]
     Indication: DEPRESSION
     Dosage: 15 MG;QD;PO
     Route: 048
     Dates: start: 20110422, end: 20110905
  5. ZYPREXA [Suspect]
     Indication: DEPRESSION
     Dosage: 2.5 MG;QD;PO
     Route: 048
     Dates: start: 20110426
  6. MEILAX (ETHYL LOFLAZEPATE) [Suspect]
     Indication: DEPRESSION
     Dosage: 2 MG;QD;PO
     Route: 048
     Dates: start: 20110422
  7. FERROUS CITRATE [Concomitant]
  8. AMOXICILLIN HYDRATE [Concomitant]

REACTIONS (6)
  - SUICIDAL IDEATION [None]
  - SUICIDE ATTEMPT [None]
  - PROTEINURIA [None]
  - PNEUMONIA ASPIRATION [None]
  - HAEMATURIA [None]
  - DEPRESSED MOOD [None]
